FAERS Safety Report 7508617-2 (Version None)
Quarter: 2011Q2

REPORT INFORMATION
  Report Type: 
  Country: None (occurrence: None)
  Receive Date: 20110527
  Receipt Date: 20110216
  Transmission Date: 20111010
  Serious: No
  Sender: FDA-Public Use
  Company Number: A0915383A

PATIENT
  Age: 36 Year
  Sex: Female
  Weight: 75.7 kg

DRUGS (5)
  1. ARMOUR [Concomitant]
  2. LETAIRIS [Concomitant]
  3. FLOLAN [Suspect]
     Dates: start: 20060401
  4. COUMADIN [Concomitant]
  5. OXYGEN [Concomitant]

REACTIONS (2)
  - CHEST DISCOMFORT [None]
  - BLOOD IRON DECREASED [None]
